FAERS Safety Report 26121410 (Version 1)
Quarter: 2025Q4

REPORT INFORMATION
  Report Type: Spontaneous
  Country: US (occurrence: None)
  Receive Date: 20251202
  Receipt Date: 20251202
  Transmission Date: 20260118
  Serious: Yes (Life-Threatening, Hospitalization, Disabling, Other)
  Sender: FDA-CTU
  Company Number: None

PATIENT
  Age: 43 Year
  Sex: Female
  Weight: 60.33 kg

DRUGS (2)
  1. VANCOMYCIN [Suspect]
     Active Substance: VANCOMYCIN
     Indication: Staphylococcal infection
     Dosage: FREQUENCY : 4 TIMES A DAY;?
     Route: 013
  2. VANCOMYCIN [Suspect]
     Active Substance: VANCOMYCIN
     Indication: Escherichia infection

REACTIONS (5)
  - Blindness [None]
  - Refusal of treatment by patient [None]
  - Skin bacterial infection [None]
  - Gastrointestinal disorder [None]
  - Pyrexia [None]
